FAERS Safety Report 4947823-8 (Version None)
Quarter: 2006Q1

REPORT INFORMATION
  Report Type: 
  Country: None (occurrence: None)
  Receive Date: 20060320
  Receipt Date: 20051212
  Transmission Date: 20060701
  Serious: Yes (Life-Threatening, Hospitalization)
  Sender: FDA-Public Use
  Company Number: PHRM2005FR03261

PATIENT
  Age: 43 Year
  Sex: Female
  Weight: 62 kg

DRUGS (4)
  1. MYFORTIC [Suspect]
     Indication: RENAL TRANSPLANT
     Dosage: 1440 MG DAILY
     Route: 048
     Dates: start: 20050809, end: 20050905
  2. CORTANCYL [Concomitant]
     Indication: RENAL TRANSPLANT
     Dosage: 7.5 MG PER DAY
     Route: 048
     Dates: start: 20040426
  3. PROGRAF [Concomitant]
     Indication: RENAL TRANSPLANT
     Dosage: 6 MG DAILY
     Route: 048
     Dates: start: 20040426
  4. TARDYFERON B(9) [Concomitant]
     Indication: ANAEMIA
     Dosage: 2 DF DAILY
     Route: 048
     Dates: start: 20040426

REACTIONS (24)
  - ABDOMINAL PAIN [None]
  - ABNORMAL FAECES [None]
  - ALANINE AMINOTRANSFERASE INCREASED [None]
  - ANOREXIA [None]
  - ASPARTATE AMINOTRANSFERASE INCREASED [None]
  - ASTHENIA [None]
  - BLOOD ALKALINE PHOSPHATASE INCREASED [None]
  - BLOOD BILIRUBIN INCREASED [None]
  - CHOLELITHIASIS [None]
  - CHOLESTASIS [None]
  - CYTOLYTIC HEPATITIS [None]
  - DRUG TOXICITY [None]
  - GAMMA-GLUTAMYLTRANSFERASE INCREASED [None]
  - GENERAL PHYSICAL HEALTH DETERIORATION [None]
  - HEPATITIS [None]
  - HEPATITIS ACUTE [None]
  - HEPATOMEGALY [None]
  - HYPERTRIGLYCERIDAEMIA [None]
  - OCULAR ICTERUS [None]
  - PRURITUS [None]
  - RASH [None]
  - URINE ABNORMALITY [None]
  - VASCULAR GRAFT COMPLICATION [None]
  - VOMITING [None]
